FAERS Safety Report 5268414-8 (Version None)
Quarter: 2007Q1

REPORT INFORMATION
  Report Type: 
  Country: None (occurrence: None)
  Receive Date: 20070319
  Receipt Date: 20070315
  Transmission Date: 20070707
  Serious: Yes (Other)
  Sender: FDA-Public Use
  Company Number: US-GLAXOSMITHKLINE-A0643377A

PATIENT
  Age: 52 Year
  Sex: Male

DRUGS (3)
  1. ADVAIR DISKUS 100/50 [Suspect]
     Indication: ASTHMA
     Route: 055
     Dates: start: 20060401
  2. SINGULAIR [Concomitant]
  3. PREVACID [Concomitant]

REACTIONS (2)
  - BLOOD AMYLASE INCREASED [None]
  - LIPASE INCREASED [None]
